FAERS Safety Report 4556178-2 (Version None)
Quarter: 2005Q1

REPORT INFORMATION
  Report Type: 
  Country: None (occurrence: None)
  Receive Date: 20050103
  Receipt Date: 20040902
  Transmission Date: 20050727
  Serious: Yes (Life-Threatening, Hospitalization)
  Sender: FDA-Public Use
  Company Number: 2004UW18805

PATIENT
  Age: 75 Year
  Sex: Male

DRUGS (1)
  1. CRESTOR [Suspect]
     Dosage: 40 MG PO
     Route: 048

REACTIONS (2)
  - RENAL FAILURE [None]
  - RHABDOMYOLYSIS [None]
